FAERS Safety Report 8502916-3 (Version None)
Quarter: 2012Q3

REPORT INFORMATION
  Report Type: 
  Country: None (occurrence: None)
  Receive Date: 20120711
  Receipt Date: 20120706
  Transmission Date: 20120928
  Serious: Yes (Hospitalization)
  Sender: FDA-Public Use
  Company Number: US-PFIZER INC-2012100451

PATIENT
  Sex: Female
  Weight: 41.723 kg

DRUGS (5)
  1. EMBEDA [Suspect]
     Indication: MYOSITIS
  2. EMBEDA [Suspect]
     Indication: BACK PAIN
  3. EMBEDA [Suspect]
     Indication: MIGRAINE
     Dosage: UNK, 1X/DAY
     Route: 048
     Dates: start: 20090101, end: 20090101
  4. ZOLOFT [Concomitant]
     Indication: DEPRESSION
     Dosage: UNK
  5. EMBEDA [Suspect]
     Indication: PAIN

REACTIONS (5)
  - MIGRAINE [None]
  - MUSCULOSKELETAL STIFFNESS [None]
  - LOWER LIMB FRACTURE [None]
  - MYALGIA [None]
  - MYOSITIS [None]
